FAERS Safety Report 25775593 (Version 2)
Quarter: 2025Q3

REPORT INFORMATION
  Report Type: Report from Study
  Country: US (occurrence: US)
  Receive Date: 20250909
  Receipt Date: 20250911
  Transmission Date: 20251021
  Serious: No
  Sender: RANBAXY
  Company Number: US-SUN PHARMACEUTICAL INDUSTRIES LTD-2025R1-525756

PATIENT
  Sex: Female

DRUGS (1)
  1. ISOTRETINOIN [Suspect]
     Active Substance: ISOTRETINOIN
     Indication: Product used for unknown indication
     Dosage: 30 MILLIGRAM, QD
     Route: 065
     Dates: start: 20240901, end: 20250824

REACTIONS (4)
  - Exposure during pregnancy [Unknown]
  - Vaginal haemorrhage [Recovered/Resolved]
  - Headache [Unknown]
  - Pregnancy test false positive [Unknown]

NARRATIVE: CASE EVENT DATE: 20250816
